FAERS Safety Report 7965297-X (Version None)
Quarter: 2011Q4

REPORT INFORMATION
  Report Type: 
  Country: None (occurrence: None)
  Receive Date: 20111208
  Receipt Date: 20111129
  Transmission Date: 20120403
  Serious: Yes (Hospitalization)
  Sender: FDA-Public Use
  Company Number: US-BAYER-201033475NA

PATIENT
  Age: 26 Year
  Sex: Female
  Weight: 61.678 kg

DRUGS (3)
  1. LORTAB [Concomitant]
  2. ACETAMINOPHEN [Concomitant]
  3. YAZ [Suspect]
     Indication: CONTRACEPTION
     Dosage: UNK UNK, UNK
     Route: 065
     Dates: start: 20050101, end: 20060101

REACTIONS (5)
  - PULMONARY EMBOLISM [None]
  - PANIC ATTACK [None]
  - STRESS [None]
  - ANXIETY [None]
  - DEPRESSION [None]
